FAERS Safety Report 7114429-4 (Version None)
Quarter: 2010Q4

REPORT INFORMATION
  Report Type: 
  Country: None (occurrence: None)
  Receive Date: 20101119
  Receipt Date: 20101109
  Transmission Date: 20110411
  Serious: Yes (Hospitalization)
  Sender: FDA-Public Use
  Company Number: US-PURDUE-USA-2010-0053707

PATIENT
  Sex: Male
  Weight: 1.6 kg

DRUGS (6)
  1. COLACE CAPSULES [Suspect]
     Indication: DRUG EXPOSURE DURING PREGNANCY
     Route: 064
  2. REBIF [Suspect]
     Indication: DRUG EXPOSURE DURING PREGNANCY
     Dosage: UNK
     Route: 064
     Dates: end: 20090201
  3. SINGULAIR [Suspect]
     Indication: DRUG EXPOSURE DURING PREGNANCY
     Route: 064
  4. ALBUTEROL [Suspect]
     Indication: DRUG EXPOSURE DURING PREGNANCY
     Route: 064
  5. VITAMINS                           /90003601/ [Suspect]
     Indication: DRUG EXPOSURE DURING PREGNANCY
     Route: 064
  6. IRON [Suspect]
     Indication: DRUG EXPOSURE DURING PREGNANCY
     Route: 064

REACTIONS (5)
  - ANAEMIA [None]
  - CEREBRAL HAEMORRHAGE [None]
  - CYANOSIS [None]
  - JAUNDICE [None]
  - PREMATURE BABY [None]
